FAERS Safety Report 17531893 (Version 2)
Quarter: 2020Q1

REPORT INFORMATION
  Report Type: Spontaneous
  Country: RU (occurrence: RU)
  Receive Date: 20200312
  Receipt Date: 20200318
  Transmission Date: 20200409
  Serious: Yes (Hospitalization)
  Sender: FDA-Public Use
  Company Number: RU-SA-2020SA048542

PATIENT
  Age: 40 Year
  Sex: Male
  Weight: 86 kg

DRUGS (4)
  1. HUMALOG [Concomitant]
     Active Substance: INSULIN LISPRO
     Indication: TYPE 2 DIABETES MELLITUS
     Dosage: 8 IU, DAILY
     Route: 058
  2. HUMALOG [Concomitant]
     Active Substance: INSULIN LISPRO
     Dosage: 8 IU, QID (EACH IN THE MORNING + NOON + EVENING + AT NIGHT)
     Route: 058
  3. TOUJEO [Suspect]
     Active Substance: INSULIN GLARGINE
     Dosage: 20-22 IU ONCE A DAY
     Route: 058
     Dates: start: 20200227
  4. TOUJEO [Suspect]
     Active Substance: INSULIN GLARGINE
     Indication: TYPE 2 DIABETES MELLITUS
     Dosage: 18 IU, QD
     Route: 058

REACTIONS (7)
  - Swelling [Unknown]
  - Eye swelling [Unknown]
  - Peripheral swelling [Recovered/Resolved]
  - Periorbital swelling [Recovered/Resolved]
  - Intentional product use issue [Unknown]
  - Peripheral swelling [Unknown]
  - Swelling [Recovered/Resolved]
